FAERS Safety Report 15380164 (Version 2)
Quarter: 2018Q4

REPORT INFORMATION
  Report Type: Spontaneous
  Country: US (occurrence: US)
  Receive Date: 20180913
  Receipt Date: 20181018
  Transmission Date: 20190204
  Serious: Yes (Hospitalization)
  Sender: FDA-Public Use
  Company Number: US-EXELIXIS-CABO-18015835

PATIENT
  Age: 73 Year
  Sex: Male

DRUGS (12)
  1. CABOMETYX [Suspect]
     Active Substance: CABOZANTINIB S-MALATE
     Dosage: 40 MG, QD
     Route: 048
     Dates: start: 20180824, end: 2018
  2. LEVETIRACETAM. [Concomitant]
     Active Substance: LEVETIRACETAM
  3. ALBUTEROL. [Concomitant]
     Active Substance: ALBUTEROL
  4. CABOMETYX [Suspect]
     Active Substance: CABOZANTINIB S-MALATE
     Indication: RENAL CELL CARCINOMA
     Dosage: 40 MG, QD
     Route: 048
     Dates: start: 20180725, end: 20180820
  5. LEVOTHYROXINE. [Concomitant]
     Active Substance: LEVOTHYROXINE
  6. TYLENOL [Concomitant]
     Active Substance: ACETAMINOPHEN
  7. CABOMETYX [Suspect]
     Active Substance: CABOZANTINIB S-MALATE
     Dosage: 40 MG, QOD
     Route: 048
     Dates: start: 20180907
  8. METOPROLOL. [Concomitant]
     Active Substance: METOPROLOL
  9. APIXABAN [Concomitant]
     Active Substance: APIXABAN
  10. ATORVASTATIN [Concomitant]
     Active Substance: ATORVASTATIN
  11. LIDOCAINE. [Concomitant]
     Active Substance: LIDOCAINE
  12. HEPARIN [Concomitant]
     Active Substance: HEPARIN SODIUM

REACTIONS (1)
  - Bronchopulmonary aspergillosis [Unknown]

NARRATIVE: CASE EVENT DATE: 20180814
